FAERS Safety Report 17216548 (Version 1)
Quarter: 2019Q4

REPORT INFORMATION
  Report Type: Spontaneous
  Country: US (occurrence: US)
  Receive Date: 20191230
  Receipt Date: 20191230
  Transmission Date: 20200122
  Serious: No
  Sender: FDA-Public Use
  Company Number: US-ASTRAZENECA-2019SF74011

PATIENT
  Sex: Female
  Weight: 55.3 kg

DRUGS (4)
  1. ZYRTEC [Concomitant]
     Active Substance: CETIRIZINE HYDROCHLORIDE
     Indication: SINUSITIS
  2. BRILINTA [Suspect]
     Active Substance: TICAGRELOR
     Indication: MYOCARDIAL INFARCTION
     Route: 048
     Dates: start: 20190521
  3. FLONASE [Concomitant]
     Active Substance: FLUTICASONE PROPIONATE
     Indication: SINUSITIS
     Dosage: 50.0UG UNKNOWN
  4. BRILINTA [Suspect]
     Active Substance: TICAGRELOR
     Indication: STENT PLACEMENT
     Route: 048
     Dates: start: 20190521

REACTIONS (8)
  - Head discomfort [Unknown]
  - Sinus disorder [Unknown]
  - Contusion [Unknown]
  - Headache [Unknown]
  - Jaw disorder [Unknown]
  - Sinusitis [Unknown]
  - Pain [Unknown]
  - Feeling abnormal [Unknown]
